FAERS Safety Report 9916464 (Version 2)
Quarter: 2014Q1

REPORT INFORMATION
  Report Type: Spontaneous
  Country: US (occurrence: None)
  Receive Date: 20140219
  Receipt Date: 20140228
  Transmission Date: 20141002
  Serious: Yes (Hospitalization)
  Sender: FDA-Public Use
  Company Number: 2013US001509

PATIENT
  Age: 50 Year
  Sex: Female

DRUGS (13)
  1. PONATINIB (AP24534) TABLET [Suspect]
     Indication: CHRONIC MYELOID LEUKAEMIA
     Dosage: 45 MG, QD, ORAL
     Route: 048
     Dates: start: 20130319, end: 20130325
  2. METFORMIN (METFORMIN) [Concomitant]
  3. HYDROXYCARBAMIDE (HYDROXYCARBAMIDE) [Concomitant]
  4. HYDREA (HYDROXYCARBAMIDE) [Concomitant]
  5. DEXILANT ER (DEXLANSOPRAZOLE) [Concomitant]
  6. SUCRALFATE (SUCRALFATE) UNKNOWN [Concomitant]
  7. DOCUSATE SODIUM (DOCUSATE SODIUM) [Concomitant]
  8. LEVEMIR (INSULIN DETENIR) [Concomitant]
  9. BISACODYL (BISACODYL) [Concomitant]
  10. ACETAMINOPHEN W/HYDROCODONE (ACETAMINOPHEN W/HYDROCODONE) [Concomitant]
  11. DILAUDID (HYDROMORPHONE HYDROCHLORIDE) [Concomitant]
  12. MILK OF MAGNESIA [Concomitant]
  13. ZOFRAN (ONDANSETRON HYDROCHLORIDE) [Concomitant]

REACTIONS (4)
  - Vestibular neuronitis [None]
  - Vertigo [None]
  - Nausea [None]
  - Vomiting [None]
